FAERS Safety Report 4615419-3 (Version None)
Quarter: 2005Q1

REPORT INFORMATION
  Report Type: 
  Country: None (occurrence: None)
  Receive Date: 20050317
  Receipt Date: 20050304
  Transmission Date: 20050727
  Serious: Yes (Other)
  Sender: FDA-Public Use
  Company Number: 2005043855

PATIENT
  Sex: Female

DRUGS (1)
  1. NEURONTIN [Suspect]
     Indication: ILL-DEFINED DISORDER

REACTIONS (3)
  - AMNESIA [None]
  - EYE DISORDER [None]
  - PAIN [None]
